FAERS Safety Report 8493509-5 (Version None)
Quarter: 2012Q3

REPORT INFORMATION
  Report Type: 
  Country: None (occurrence: None)
  Receive Date: 20120706
  Receipt Date: 20120621
  Transmission Date: 20120928
  Serious: Yes (Other)
  Sender: FDA-Public Use
  Company Number: CN-ASTELLAS-2012US005060

PATIENT
  Age: 31 Year
  Sex: Female
  Weight: 54 kg

DRUGS (6)
  1. TARCEVA [Suspect]
     Indication: LUNG ADENOCARCINOMA
     Dosage: 150 MG, UID/QD
     Route: 048
     Dates: start: 20120418
  2. AVASTIN [Suspect]
     Indication: NON-SMALL CELL LUNG CANCER
     Dosage: 795 MG, OTHER, ONCE EVERY 21-28 DAYS
     Route: 041
     Dates: start: 20110701, end: 20120301
  3. MANNITOL [Concomitant]
     Indication: VOMITING
  4. GLYCERIN AND FRUCTOSE [Concomitant]
     Indication: VOMITING
  5. GLYCERIN AND FRUCTOSE [Concomitant]
     Indication: HEADACHE
     Dosage: UNK
     Route: 065
  6. MANNITOL [Concomitant]
     Indication: HEADACHE
     Dosage: UNK
     Route: 065

REACTIONS (7)
  - RASH [None]
  - ARTHRALGIA [None]
  - BLOOD ALKALINE PHOSPHATASE INCREASED [None]
  - ANAL ABSCESS [None]
  - DIPLOPIA [None]
  - ASTHENIA [None]
  - DIZZINESS [None]
